FAERS Safety Report 9162110 (Version 1)
Quarter: 2013Q1

REPORT INFORMATION
  Report Type: Spontaneous
  Country: AU (occurrence: None)
  Receive Date: 20130220
  Receipt Date: 20130220
  Transmission Date: 20140127
  Serious: Yes (Other)
  Sender: FDA-Public Use
  Company Number: SP06404

PATIENT
  Sex: Male

DRUGS (2)
  1. MOVIPREP (SOLUTION) [Suspect]
     Indication: BOWEL PREPARATION
     Route: 048
  2. FLEET PHOSPHO-SODA [Suspect]
     Indication: BOWEL PREPARATION
     Route: 048

REACTIONS (1)
  - Cardiovascular disorder [None]
